FAERS Safety Report 9419076 (Version 2)
Quarter: 2013Q3

REPORT INFORMATION
  Report Type: Report from Study
  Country: BE (occurrence: BE)
  Receive Date: 20130725
  Receipt Date: 20130726
  Transmission Date: 20140515
  Serious: Yes (Death, Other)
  Sender: FDA-Public Use
  Company Number: PHHY2013BE078800

PATIENT
  Sex: Female

DRUGS (10)
  1. ACLASTA [Suspect]
     Dosage: YEARLY
     Route: 042
     Dates: start: 20110509
  2. ACLASTA [Suspect]
     Dosage: YEARLY
     Route: 042
     Dates: start: 20120628
  3. COVERSYL [Concomitant]
     Dosage: UNK
  4. OMEPRAZOLE [Concomitant]
     Dosage: UNK
  5. ZOCOR [Concomitant]
     Dosage: UNK
  6. AMLOR [Concomitant]
     Dosage: UNK
  7. FERRO GRADUMET [Concomitant]
     Dosage: UNK
  8. LASIX [Concomitant]
     Dosage: UNK
  9. CORUNO [Concomitant]
     Dosage: UNK
  10. ASAFLOW [Concomitant]
     Dosage: 80 MG

REACTIONS (2)
  - Myocardial infarction [Fatal]
  - Hypertrophic cardiomyopathy [Unknown]
